FAERS Safety Report 20743482 (Version 3)
Quarter: 2022Q2

REPORT INFORMATION
  Report Type: Report from Study
  Country: BE (occurrence: BE)
  Receive Date: 20220425
  Receipt Date: 20220523
  Transmission Date: 20220720
  Serious: Yes (Hospitalization, Other)
  Sender: FDA-Public Use
  Company Number: BE-BRISTOL-MYERS SQUIBB COMPANY-2022-021184

PATIENT
  Age: 52 Year
  Sex: Female
  Weight: 100 kg

DRUGS (8)
  1. APIXABAN [Suspect]
     Active Substance: APIXABAN
     Indication: Embolism venous
     Dosage: 5 MG TWICE A DAY OR 2.5 MG TWICE A DAY ACCORDING TO THE RANDOMIZATION GROUP.
     Route: 048
     Dates: start: 20210909, end: 20220404
  2. APIXABAN [Suspect]
     Active Substance: APIXABAN
     Indication: Neoplasm malignant
     Dosage: 5 MG TWICE A DAY OR 2.5?MG TWICE A DAY?ACCORDING TO THE?RANDOMIZATION GROUP
     Route: 048
     Dates: start: 20220414
  3. FENTANYL [Concomitant]
     Active Substance: FENTANYL
     Indication: Pain
     Dosage: ONGOING
     Route: 048
     Dates: end: 20220412
  4. OXYCODONE HYDROCHLORIDE [Concomitant]
     Active Substance: OXYCODONE HYDROCHLORIDE
     Indication: Pain
     Dosage: ONGOING
     Route: 048
  5. ACETAMINOPHEN [Concomitant]
     Active Substance: ACETAMINOPHEN
     Indication: Pain
     Dosage: ONGOING
     Route: 048
  6. PANTOPRAZOLE SODIUM [Concomitant]
     Active Substance: PANTOPRAZOLE SODIUM
     Indication: Prophylaxis
     Dosage: ONGOING
     Route: 048
  7. AROMASIN [Concomitant]
     Active Substance: EXEMESTANE
     Indication: Neoplasm malignant
     Dosage: ONGOING
     Route: 065
     Dates: start: 20220105
  8. EVEROLIMUS [Concomitant]
     Active Substance: EVEROLIMUS
     Indication: Neoplasm malignant
     Dosage: ONGOING
     Route: 065
     Dates: start: 20220301

REACTIONS (1)
  - Cholecystitis acute [Recovered/Resolved with Sequelae]

NARRATIVE: CASE EVENT DATE: 20220401
